FAERS Safety Report 24841904 (Version 1)
Quarter: 2025Q1

REPORT INFORMATION
  Report Type: Spontaneous
  Country: CZ (occurrence: CZ)
  Receive Date: 20250114
  Receipt Date: 20250114
  Transmission Date: 20250409
  Serious: Yes (Other)
  Sender: ALEXION PHARMACEUTICALS
  Company Number: CZ-AstraZeneca-CH-00728706A

PATIENT
  Age: 69 Year

DRUGS (8)
  1. OLAPARIB [Suspect]
     Active Substance: OLAPARIB
     Indication: Hormone-refractory prostate cancer
  2. OLAPARIB [Suspect]
     Active Substance: OLAPARIB
     Route: 048
  3. OLAPARIB [Suspect]
     Active Substance: OLAPARIB
  4. OLAPARIB [Suspect]
     Active Substance: OLAPARIB
     Route: 048
  5. ABIRATERONE [Concomitant]
     Active Substance: ABIRATERONE
     Indication: Prostate cancer
     Route: 065
  6. ABIRATERONE [Concomitant]
     Active Substance: ABIRATERONE
     Route: 065
  7. PREDNISONE [Concomitant]
     Active Substance: PREDNISONE
     Indication: Prostate cancer
     Route: 065
  8. PREDNISONE [Concomitant]
     Active Substance: PREDNISONE
     Route: 065

REACTIONS (4)
  - Malignant neoplasm progression [Unknown]
  - Metastases to bone [Unknown]
  - Hypertension [Recovered/Resolved]
  - Chest pain [Unknown]
